FAERS Safety Report 4322105-6 (Version None)
Quarter: 2004Q1

REPORT INFORMATION
  Report Type: 
  Country: None (occurrence: None)
  Receive Date: 20040323
  Receipt Date: 20040311
  Transmission Date: 20041129
  Serious: Yes (Other)
  Sender: FDA-Public Use
  Company Number: GB-GLAXOSMITHKLINE-B0326444A

PATIENT
  Sex: Male

DRUGS (3)
  1. AVANDIA [Suspect]
     Route: 048
  2. METFORMIN HCL [Concomitant]
  3. INSULIN [Concomitant]

REACTIONS (3)
  - GENERALISED OEDEMA [None]
  - HEPATIC CIRRHOSIS [None]
  - OEDEMA PERIPHERAL [None]
